FAERS Safety Report 24607830 (Version 1)
Quarter: 2024Q4

REPORT INFORMATION
  Report Type: Spontaneous
  Country: US (occurrence: None)
  Receive Date: 20241111
  Receipt Date: 20241111
  Transmission Date: 20250115
  Serious: Yes (Hospitalization, Disabling)
  Sender: Public
  Company Number: None

PATIENT
  Age: 61 Year
  Sex: Male
  Weight: 77.85 kg

DRUGS (1)
  1. CIPROFLOXACIN [Suspect]
     Active Substance: CIPROFLOXACIN
     Indication: Diverticulum intestinal
     Dates: start: 20240325, end: 20240401

REACTIONS (11)
  - Myalgia [None]
  - Arthralgia [None]
  - Peripheral swelling [None]
  - Peripheral swelling [None]
  - Therapy non-responder [None]
  - Muscle atrophy [None]
  - Fatigue [None]
  - Pulmonary oedema [None]
  - Atrial flutter [None]
  - Weight decreased [None]
  - Gait disturbance [None]

NARRATIVE: CASE EVENT DATE: 20240325
